FAERS Safety Report 5598445-X (Version None)
Quarter: 2008Q1

REPORT INFORMATION
  Report Type: 
  Country: None (occurrence: None)
  Receive Date: 20080122
  Receipt Date: 20080116
  Transmission Date: 20080703
  Serious: Yes (Other)
  Sender: FDA-Public Use
  Company Number: US-JNJFOC-20080103890

PATIENT
  Age: 23 Year
  Sex: Male
  Weight: 77.11 kg

DRUGS (2)
  1. LEVAQUIN [Suspect]
     Indication: ORCHITIS
     Route: 048
  2. HYDROXYZINE [Concomitant]
     Indication: ANXIETY
     Route: 048

REACTIONS (2)
  - ARTHRALGIA [None]
  - ARTHROPATHY [None]
